FAERS Safety Report 17338402 (Version 1)
Quarter: 2020Q1

REPORT INFORMATION
  Report Type: Spontaneous
  Country: US (occurrence: US)
  Receive Date: 20200128
  Receipt Date: 20200128
  Transmission Date: 20200409
  Serious: Yes (Hospitalization)
  Sender: FDA-Public Use
  Company Number: None

PATIENT
  Age: 70 Year
  Sex: Female

DRUGS (12)
  1. TOBRA/DEXAME [Concomitant]
  2. METHOTREXATE. [Concomitant]
     Active Substance: METHOTREXATE
  3. LEVOTHYROXIN [Concomitant]
     Active Substance: LEVOTHYROXINE
  4. HUMIRA [Suspect]
     Active Substance: ADALIMUMAB
     Indication: RHEUMATOID ARTHRITIS
     Dosage: ?          OTHER FREQUENCY:EVERY 2 WEEKS;?
     Route: 058
     Dates: start: 20191008
  5. TRAMADOL. [Concomitant]
     Active Substance: TRAMADOL
  6. FOLIC ACID. [Concomitant]
     Active Substance: FOLIC ACID
  7. XIIDRA [Concomitant]
     Active Substance: LIFITEGRAST
  8. VIT. D [Concomitant]
  9. AZITHROMYCIN ANHYDROUS. [Concomitant]
     Active Substance: AZITHROMYCIN ANHYDROUS
  10. CYCLOBENZAPR [Concomitant]
     Active Substance: CYCLOBENZAPRINE
  11. PREGABLIN [Concomitant]
     Active Substance: PREGABALIN
  12. MONTELUKAST [Concomitant]
     Active Substance: MONTELUKAST SODIUM

REACTIONS (1)
  - Eye infection [None]

NARRATIVE: CASE EVENT DATE: 20200127
